FAERS Safety Report 11641662 (Version 3)
Quarter: 2015Q4

REPORT INFORMATION
  Report Type: Spontaneous
  Country: IT (occurrence: JP)
  Receive Date: 20151019
  Receipt Date: 20151123
  Transmission Date: 20160304
  Serious: Yes (Other)
  Sender: FDA-Public Use
  Company Number: IT-SIGMA-TAU US-2015STPI000664

PATIENT
  Age: 52 Year
  Sex: Male

DRUGS (3)
  1. LEVOCARNITINE. [Suspect]
     Active Substance: LEVOCARNITINE
     Indication: HEPATIC ENCEPHALOPATHY PROPHYLAXIS
     Dosage: 3000 MG, X1
     Route: 042
     Dates: start: 20140903, end: 20140903
  2. LEVOCARNITINE. [Suspect]
     Active Substance: LEVOCARNITINE
     Dosage: 6000 MG, X1
     Route: 042
     Dates: start: 20140904, end: 20140904
  3. LEVOCARNITINE. [Suspect]
     Active Substance: LEVOCARNITINE
     Dosage: UNK
     Route: 042
     Dates: start: 20140905, end: 20150905

REACTIONS (1)
  - Pancreatitis [Recovered/Resolved]

NARRATIVE: CASE EVENT DATE: 20140904
